FAERS Safety Report 7339008-5 (Version None)
Quarter: 2011Q1

REPORT INFORMATION
  Report Type: 
  Country: None (occurrence: None)
  Receive Date: 20110308
  Receipt Date: 20110202
  Transmission Date: 20110831
  Serious: Yes (Hospitalization)
  Sender: FDA-Public Use
  Company Number: HU-JNJFOC-20110202164

PATIENT
  Sex: Female
  Weight: 77 kg

DRUGS (15)
  1. FOLIC ACID [Concomitant]
     Route: 048
  2. DIVIGEL [Concomitant]
     Route: 062
  3. GOLIMUMAB [Suspect]
     Route: 058
  4. INDOMETACIN [Concomitant]
     Route: 054
  5. METHOTREXATE [Suspect]
     Indication: RHEUMATOID ARTHRITIS
     Route: 048
  6. BISOPROLOL FUMARATE [Concomitant]
     Route: 048
  7. PLACEBO [Suspect]
     Indication: RHEUMATOID ARTHRITIS
     Route: 058
  8. METHOTREXATE [Concomitant]
     Route: 048
  9. METHYLPREDNISOLONE [Concomitant]
     Route: 048
  10. POTASSIUM CHLORIDE [Concomitant]
     Route: 048
  11. RABEPRAZOLE SODIUM [Concomitant]
     Route: 048
  12. METHOTREXATE [Concomitant]
     Route: 048
  13. CARVEDILOL [Concomitant]
     Route: 048
  14. VITAMIN D [Concomitant]
     Route: 048
  15. GOLIMUMAB [Suspect]
     Indication: RHEUMATOID ARTHRITIS
     Route: 058

REACTIONS (1)
  - THYROID NEOPLASM [None]
